FAERS Safety Report 7971601-9 (Version None)
Quarter: 2011Q4

REPORT INFORMATION
  Report Type: 
  Country: None (occurrence: None)
  Receive Date: 20111209
  Receipt Date: 20111209
  Transmission Date: 20120403
  Serious: Yes (Hospitalization)
  Sender: FDA-Public Use
  Company Number: None

PATIENT
  Age: 68 Year
  Sex: Female
  Weight: 107.2 kg

DRUGS (2)
  1. CEFTRIAXONE [Suspect]
     Dosage: 1 GM EVERY DAY IM
     Route: 030
     Dates: start: 20111005, end: 20111005
  2. CEFTRIAXONE [Suspect]
     Indication: URINARY TRACT INFECTION
     Dosage: 1 GM EVERY DAY IM
     Route: 030
     Dates: start: 20111005, end: 20111005

REACTIONS (1)
  - ANGIOEDEMA [None]
